FAERS Safety Report 5011859-1 (Version None)
Quarter: 2006Q2

REPORT INFORMATION
  Report Type: 
  Country: None (occurrence: None)
  Receive Date: 20060526
  Receipt Date: 20060508
  Transmission Date: 20061013
  Serious: Yes (Death, Hospitalization)
  Sender: FDA-Public Use
  Company Number: US-SANOFI-SYNTHELABO-A03200602914

PATIENT
  Sex: Male

DRUGS (7)
  1. PLAVIX [Suspect]
     Indication: DRUG USE FOR UNKNOWN INDICATION
     Dosage: UNK
     Route: 048
  2. POTASSIUM [Concomitant]
     Route: 048
  3. MINOXIDIL [Concomitant]
     Route: 048
  4. TOPROL-XL [Concomitant]
     Route: 048
  5. LASIX [Concomitant]
     Route: 048
  6. ASPIRIN [Concomitant]
     Route: 048
  7. CLONIDINE [Concomitant]
     Route: 048

REACTIONS (5)
  - HYPERTENSION [None]
  - LOSS OF CONSCIOUSNESS [None]
  - TACHYPNOEA [None]
  - THALAMUS HAEMORRHAGE [None]
  - VOMITING [None]
